FAERS Safety Report 26012633 (Version 1)
Quarter: 2025Q4

REPORT INFORMATION
  Report Type: Spontaneous
  Country: EU (occurrence: EU)
  Receive Date: 20251107
  Receipt Date: 20251107
  Transmission Date: 20260117
  Serious: Yes (Life-Threatening)
  Sender: BRACCO
  Company Number: EU-BRACCO-2025FR07648

PATIENT
  Age: 85 Year
  Sex: Female

DRUGS (1)
  1. IOMERON [Suspect]
     Active Substance: IOMEPROL
     Indication: Computerised tomogram
     Dosage: 90 ML, SINGLE
     Route: 042
     Dates: start: 20250904, end: 20250904

REACTIONS (3)
  - Agitation [Unknown]
  - Aphasia [Unknown]
  - Dyspnoea [Unknown]

NARRATIVE: CASE EVENT DATE: 20250904
